FAERS Safety Report 23065080 (Version 2)
Quarter: 2025Q1

REPORT INFORMATION
  Report Type: Spontaneous
  Country: US (occurrence: US)
  Receive Date: 20231013
  Receipt Date: 20250122
  Transmission Date: 20250409
  Serious: No
  Sender: PFIZER
  Company Number: US-PFIZER INC-PV202300167426

PATIENT
  Age: 72 Year
  Sex: Male
  Weight: 92.971 kg

DRUGS (2)
  1. VYNDAQEL [Suspect]
     Active Substance: TAFAMIDIS MEGLUMINE
     Indication: Amyloidosis
     Dosage: 80 MG, DAILY
  2. ONPATTRO [Suspect]
     Active Substance: PATISIRAN SODIUM
     Indication: Familial amyloidosis

REACTIONS (1)
  - Body height decreased [Unknown]
